FAERS Safety Report 9894113 (Version 3)
Quarter: 2016Q2

REPORT INFORMATION
  Report Type: Spontaneous
  Country: FR (occurrence: FR)
  Receive Date: 20140213
  Receipt Date: 20160603
  Transmission Date: 20160815
  Serious: Yes (Death, Life-Threatening, Hospitalization, Other)
  Sender: FDA-Public Use
  Company Number: FR-MERCK-1402FRA001217

PATIENT
  Age: 57 Year
  Sex: Male

DRUGS (17)
  1. AMIKACIN [Suspect]
     Active Substance: AMIKACIN
     Indication: PRODUCT USED FOR UNKNOWN INDICATION
     Dosage: 1750 MG, QD
     Route: 042
     Dates: start: 20131226, end: 20131230
  2. ZELITREX [Suspect]
     Active Substance: VALACYCLOVIR HYDROCHLORIDE
     Indication: PRODUCT USED FOR UNKNOWN INDICATION
     Dosage: 2 DF, TID
     Route: 065
     Dates: start: 20131203, end: 20140112
  3. ATGAM [Concomitant]
     Active Substance: EQUINE THYMOCYTE IMMUNE GLOBULIN
     Indication: PRODUCT USED FOR UNKNOWN INDICATION
     Dosage: UNK UNK, UNK
     Route: 065
     Dates: start: 20131214, end: 20131217
  4. CUBICIN [Suspect]
     Active Substance: DAPTOMYCIN
     Indication: PRODUCT USED FOR UNKNOWN INDICATION
     Dosage: 420 MG, QD
     Route: 042
     Dates: start: 20140103, end: 20140107
  5. CEFEPIME [Suspect]
     Active Substance: CEFEPIME HYDROCHLORIDE
     Indication: PRODUCT USED FOR UNKNOWN INDICATION
     Dosage: 2 G, TID
     Route: 042
     Dates: start: 20131224, end: 20131229
  6. OFLOCET (OFLOXACIN) [Concomitant]
     Active Substance: OFLOXACIN
     Indication: PRODUCT USED FOR UNKNOWN INDICATION
     Dosage: UNK UNK, UNK
     Route: 065
     Dates: start: 201312, end: 20131220
  7. SOLU-MEDROL [Concomitant]
     Active Substance: METHYLPREDNISOLONE SODIUM SUCCINATE
     Indication: PRODUCT USED FOR UNKNOWN INDICATION
     Dosage: UNK UNK, UNK
     Route: 065
     Dates: start: 20131214, end: 20140102
  8. MOTILIUM [Concomitant]
     Active Substance: DOMPERIDONE
     Indication: PRODUCT USED FOR UNKNOWN INDICATION
     Dosage: UNK UNK UNK
     Route: 065
     Dates: start: 20131218, end: 20131224
  9. VANCOMYCIN [Suspect]
     Active Substance: VANCOMYCIN
     Indication: PRODUCT USED FOR UNKNOWN INDICATION
     Dosage: 2.5 G, QD (5 DOSEFORMS DAILY)
     Route: 042
     Dates: start: 20131224, end: 20140102
  10. FLAGYL [Concomitant]
     Active Substance: METRONIDAZOLE\METRONIDAZOLE HYDROCHLORIDE
     Indication: DIVERTICULITIS
     Dosage: UNK UNK UNK
     Route: 065
     Dates: start: 20140103, end: 20140103
  11. NOXAFIL [Suspect]
     Active Substance: POSACONAZOLE
     Indication: PRODUCT USED FOR UNKNOWN INDICATION
     Dosage: (STRENGTH: 40 MG/ML) 300 MG, TID
     Route: 048
     Dates: start: 20131205, end: 20140109
  12. HEPARIN SODIUM. [Suspect]
     Active Substance: HEPARIN SODIUM
     Indication: PRODUCT USED FOR UNKNOWN INDICATION
     Dosage: 7000 IU, QD
     Route: 042
     Dates: start: 20131224, end: 20140108
  13. CYCLOSPORINE. [Suspect]
     Active Substance: CYCLOSPORINE
     Indication: PRODUCT USED FOR UNKNOWN INDICATION
     Dosage: 220 MG, QD
     Route: 042
     Dates: start: 20131214, end: 20140105
  14. OROKEN [Concomitant]
     Active Substance: CEFIXIME
     Indication: DIVERTICULITIS
     Dosage: UNK, UNK, UNK
     Route: 065
     Dates: start: 201311
  15. TAZOCILLINE [Suspect]
     Active Substance: PIPERACILLIN SODIUM\TAZOBACTAM SODIUM
     Indication: PRODUCT USED FOR UNKNOWN INDICATION
     Dosage: (4G/500 MG) 1DF QID
     Route: 042
     Dates: start: 20131230, end: 20140103
  16. INEXIUM (ESOMEPRAZOLE MAGNESIUM) [Suspect]
     Active Substance: ESOMEPRAZOLE MAGNESIUM
     Indication: PRODUCT USED FOR UNKNOWN INDICATION
     Dosage: 20 MG, QD
     Route: 048
     Dates: start: 20131205, end: 20140111
  17. IMIPENEM AND CILASTATIN [Concomitant]
     Active Substance: CILASTATIN SODIUM\IMIPENEM
     Indication: PRODUCT USED FOR UNKNOWN INDICATION
     Dosage: UNK UNK, UNK
     Route: 065
     Dates: start: 20141206, end: 20141220

REACTIONS (16)
  - Circulatory collapse [Fatal]
  - Septic shock [Unknown]
  - Bacteraemia [Unknown]
  - Inflammation [Unknown]
  - Diffuse cutaneous mastocytosis [Unknown]
  - Myalgia [Unknown]
  - Generalised oedema [Unknown]
  - Platelet count decreased [Unknown]
  - Pyrexia [Unknown]
  - Therapy cessation [Unknown]
  - C-reactive protein increased [Unknown]
  - Generalised oedema [Unknown]
  - Skin mass [Unknown]
  - Confusional state [Unknown]
  - Hypoalbuminaemia [Unknown]
  - Skin necrosis [Unknown]

NARRATIVE: CASE EVENT DATE: 20140104
